FAERS Safety Report 13538743 (Version 1)
Quarter: 2017Q2

REPORT INFORMATION
  Report Type: Spontaneous
  Country: US (occurrence: US)
  Receive Date: 20170512
  Receipt Date: 20170512
  Transmission Date: 20170830
  Serious: No
  Sender: FDA-Public Use
  Company Number: PHEH2017US014144

PATIENT
  Age: 80 Year
  Sex: Male

DRUGS (2)
  1. VOTRIENT [Suspect]
     Active Substance: PAZOPANIB HYDROCHLORIDE
     Dosage: 200 MG, QD
     Route: 048
     Dates: end: 20170404
  2. VOTRIENT [Suspect]
     Active Substance: PAZOPANIB HYDROCHLORIDE
     Indication: PROSTATE CANCER
     Dosage: 400 MG, QD
     Route: 048
     Dates: start: 20161023, end: 20170404

REACTIONS (2)
  - Hypertension [Unknown]
  - Pain in extremity [Unknown]

NARRATIVE: CASE EVENT DATE: 20170405
